FAERS Safety Report 20194265 (Version 2)
Quarter: 2022Q2

REPORT INFORMATION
  Report Type: Spontaneous
  Country: US (occurrence: US)
  Receive Date: 20211216
  Receipt Date: 20220406
  Transmission Date: 20220721
  Serious: Yes (Death, Hospitalization)
  Sender: FDA-Public Use
  Company Number: US-TEVA-2021-US-1989328

PATIENT
  Age: 61 Year
  Sex: Male
  Weight: 120.65 kg

DRUGS (9)
  1. AMLODIPINE\VALSARTAN [Suspect]
     Active Substance: AMLODIPINE\VALSARTAN
     Indication: Hypertension
     Dosage: 5/160MG
     Route: 065
     Dates: start: 20150430, end: 20170905
  2. AMLODIPINE\VALSARTAN [Suspect]
     Active Substance: AMLODIPINE\VALSARTAN
     Indication: Hypertension
     Dosage: 5/160MG
     Route: 065
     Dates: start: 20170917, end: 20181111
  3. ALLOPURINOL [Concomitant]
     Active Substance: ALLOPURINOL
     Indication: Gout
     Route: 065
     Dates: start: 2015, end: 2019
  4. METOPROLOL TARTRATE [Concomitant]
     Active Substance: METOPROLOL TARTRATE
     Indication: Hypertension
     Route: 065
     Dates: start: 2018, end: 2019
  5. ALEVE [Concomitant]
     Active Substance: NAPROXEN SODIUM
     Indication: Pain
     Route: 065
     Dates: start: 2012, end: 2019
  6. VITAMIN D [Concomitant]
     Active Substance: VITAMIN D NOS
     Route: 065
     Dates: start: 2012, end: 2019
  7. VITAMINS [Concomitant]
     Active Substance: VITAMINS
     Route: 065
     Dates: start: 2012, end: 2019
  8. VENTOLIN HFA [Concomitant]
     Active Substance: ALBUTEROL SULFATE
     Indication: Chest discomfort
     Dosage: 90MCG/ACTUATION; 1-2 INHALATIONS
     Route: 048
     Dates: start: 20191210
  9. PROVENTIL HFA [Concomitant]
     Active Substance: ALBUTEROL SULFATE
     Indication: Chest discomfort
     Dosage: 90MCG/ACTUATION; 1-2 INHALATIONS
     Route: 048
     Dates: start: 20191210

REACTIONS (6)
  - Cardiac arrest [Fatal]
  - Hyperkalaemia [Fatal]
  - Lymphoma [Fatal]
  - Acute kidney injury [Fatal]
  - Septic shock [Fatal]
  - Tumour lysis syndrome [Fatal]
